FAERS Safety Report 9260758 (Version 1)
Quarter: 2013Q1

REPORT INFORMATION
  Report Type: Spontaneous
  Country: US (occurrence: None)
  Receive Date: 20121212
  Receipt Date: 20121212
  Transmission Date: 20140127
  Serious: No
  Sender: FDA-Public Use
  Company Number: 1210USA004354

PATIENT
  Age: 53 Year
  Sex: Male

DRUGS (3)
  1. PEGINTRON (PEGINTERFERON ALFA-2B) POWDER FOR INJECTION [Suspect]
     Indication: HEPATITIS C
     Dates: start: 20111107, end: 20120423
  2. REBETOL (RIBAVIRIN) CAPSULE [Suspect]
     Indication: HEPATITIS C
     Dates: start: 20030101
  3. VICTRELIS (BOCEPREVIR) CAPSULE [Suspect]
     Indication: HEPATITIS C
     Dates: start: 20111211, end: 20120423

REACTIONS (7)
  - Arthralgia [None]
  - Decreased appetite [None]
  - Weight decreased [None]
  - Dysgeusia [None]
  - Poor quality sleep [None]
  - Therapeutic response decreased [None]
  - Viral load increased [None]
